FAERS Safety Report 21684598 (Version 44)
Quarter: 2024Q4

REPORT INFORMATION
  Report Type: Report from Study
  Country: US (occurrence: US)
  Receive Date: 20221205
  Receipt Date: 20241204
  Transmission Date: 20250115
  Serious: Yes (Hospitalization, Other)
  Sender: TAKEDA
  Company Number: US-TAKEDA-2022TUS084336

PATIENT
  Age: 49 Year
  Sex: Female

DRUGS (4)
  1. HUMAN IMMUNOGLOBULIN G [Suspect]
     Active Substance: HUMAN IMMUNOGLOBULIN G
     Indication: Primary immunodeficiency syndrome
     Dosage: UNK
  2. HUMAN IMMUNOGLOBULIN G [Suspect]
     Active Substance: HUMAN IMMUNOGLOBULIN G
     Indication: Immunodeficiency common variable
     Dosage: 8 GRAM
  3. HUMAN IMMUNOGLOBULIN G [Suspect]
     Active Substance: HUMAN IMMUNOGLOBULIN G
     Dosage: UNK
  4. HUMAN IMMUNOGLOBULIN G [Suspect]
     Active Substance: HUMAN IMMUNOGLOBULIN G
     Dosage: 8 GRAM, 1/WEEK

REACTIONS (44)
  - Loss of consciousness [Unknown]
  - Concussion [Unknown]
  - Ischaemia [Unknown]
  - Intracranial pressure increased [Unknown]
  - Head injury [Unknown]
  - Pneumonia [Unknown]
  - Central nervous system infection [Unknown]
  - Blindness [Unknown]
  - Emotional distress [Unknown]
  - Autoimmune demyelinating disease [Unknown]
  - Post procedural complication [Unknown]
  - Cerebral haemorrhage [Unknown]
  - Hydrocephalus [Unknown]
  - Seizure [Unknown]
  - Visual impairment [Unknown]
  - Hypertension [Unknown]
  - Hip fracture [Unknown]
  - Headache [Not Recovered/Not Resolved]
  - Migraine [Unknown]
  - Illness [Unknown]
  - Ankle fracture [Unknown]
  - COVID-19 [Unknown]
  - Fall [Unknown]
  - Bacterial infection [Unknown]
  - Dysphagia [Unknown]
  - Lumbar puncture [Unknown]
  - Procedural headache [Unknown]
  - Multiple allergies [Unknown]
  - Inappropriate schedule of product administration [Recovered/Resolved]
  - Product dose omission issue [Unknown]
  - Sinusitis [Unknown]
  - Poor quality sleep [Unknown]
  - Insomnia [Unknown]
  - Malaise [Unknown]
  - Pain [Unknown]
  - Vomiting [Unknown]
  - Nausea [Unknown]
  - Fatigue [Unknown]
  - Catheter site pain [Unknown]
  - Hypoacusis [Unknown]
  - Urinary tract infection [Unknown]
  - Post procedural haemorrhage [Unknown]
  - Optic nerve disorder [Unknown]
  - Post procedural pruritus [Unknown]

NARRATIVE: CASE EVENT DATE: 20240125
